FAERS Safety Report 9192644 (Version 1)
Quarter: 2013Q1

REPORT INFORMATION
  Report Type: Spontaneous
  Country: US (occurrence: US)
  Receive Date: 20130327
  Receipt Date: 20130327
  Transmission Date: 20140127
  Serious: Yes (Other)
  Sender: FDA-Public Use
  Company Number: US-NAPPMUNDI-USA-2013-0100098

PATIENT
  Sex: Female

DRUGS (4)
  1. OXYCONTIN (NDA 22-272) [Suspect]
     Indication: PAIN
     Dosage: 80 MG, TID
     Route: 048
  2. MIRALAX                            /00754501/ [Concomitant]
     Indication: CONSTIPATION
  3. DOCUSATE SODIUM [Concomitant]
     Indication: CONSTIPATION
     Dosage: 720 MG, DAILY
     Route: 048
  4. AMITIZA [Concomitant]
     Indication: CONSTIPATION
     Dosage: 24 MG, BID
     Route: 048

REACTIONS (6)
  - Uterine prolapse [Not Recovered/Not Resolved]
  - Bladder prolapse [Not Recovered/Not Resolved]
  - Intestinal prolapse [Not Recovered/Not Resolved]
  - Constipation [Not Recovered/Not Resolved]
  - Rectal tenesmus [Unknown]
  - Poor quality sleep [Unknown]
